FAERS Safety Report 5921812-9 (Version None)
Quarter: 2008Q4

REPORT INFORMATION
  Report Type: 
  Country: None (occurrence: None)
  Receive Date: 20081017
  Receipt Date: 20081009
  Transmission Date: 20090506
  Serious: Yes (Other)
  Sender: FDA-Public Use
  Company Number: US-AMGEN-US309168

PATIENT
  Age: 82 Year
  Sex: Female
  Weight: 59.9 kg

DRUGS (5)
  1. NEULASTA [Suspect]
     Indication: CHEMOTHERAPY
     Route: 065
     Dates: start: 20080904
  2. AGGRENOX [Concomitant]
     Route: 048
     Dates: start: 20071221
  3. UNSPECIFIED ANTINEOPLASTIC AGENT [Concomitant]
     Route: 065
  4. LUMIGAN [Concomitant]
     Route: 047
     Dates: start: 20071011
  5. COSOPT [Concomitant]
     Route: 047
     Dates: start: 20071119

REACTIONS (5)
  - ARTHRITIS [None]
  - ASTHENIA [None]
  - BONE PAIN [None]
  - FATIGUE [None]
  - MALAISE [None]
